FAERS Safety Report 9885251 (Version 1)
Quarter: 2014Q1

REPORT INFORMATION
  Report Type: Spontaneous
  Country: US (occurrence: US)
  Receive Date: 20140210
  Receipt Date: 20140210
  Transmission Date: 20141002
  Serious: No
  Sender: FDA-Public Use
  Company Number: US-PFIZER INC-2014034182

PATIENT
  Sex: Male

DRUGS (4)
  1. VERAPAMIL HCL [Suspect]
     Indication: CAROTID ARTERY DISEASE
     Dosage: UNK
  2. CLONIDINE [Concomitant]
     Dosage: UNK
  3. LISINOPRIL [Concomitant]
     Dosage: UNK
  4. LIPITOR [Concomitant]
     Dosage: 5 MG, 1X/DAY

REACTIONS (2)
  - Local swelling [Unknown]
  - Blood pressure decreased [Unknown]
